FAERS Safety Report 9031802 (Version 1)
Quarter: 2013Q1

REPORT INFORMATION
  Report Type: Spontaneous
  Country: US (occurrence: US)
  Receive Date: 20130124
  Receipt Date: 20130124
  Transmission Date: 20140127
  Serious: Yes (Other)
  Sender: FDA-Public Use
  Company Number: US-PERRIGO-13US000377

PATIENT
  Age: 43 Year
  Sex: Female
  Weight: 111.11 kg

DRUGS (9)
  1. NIGHTTIME MIXED BRY 872 [Suspect]
     Indication: COUGH
     Dosage: 2.5 ML, SINGLE
     Route: 048
     Dates: start: 20130113, end: 20130113
  2. CYMBALTA [Concomitant]
     Indication: ANXIETY
     Dosage: UNK, UNK
     Route: 048
  3. LEVOTHYROXINE [Concomitant]
     Indication: THYROID DISORDER
     Dosage: UNK, UNK
     Route: 048
  4. OMEPRAZOLE [Concomitant]
     Indication: GASTRIC DISORDER
     Dosage: UNK, UNK
     Route: 048
  5. VITAMIN B1 [Concomitant]
     Indication: SUPPLEMENTATION THERAPY
     Dosage: UNK, UNK
     Route: 065
  6. VITAMIN B12 [Concomitant]
     Indication: SUPPLEMENTATION THERAPY
     Dosage: UNK, UNK
     Route: 065
  7. MULTIVITAMIN [Concomitant]
     Indication: SUPPLEMENTATION THERAPY
     Dosage: UNK, UNK
     Route: 065
  8. OXYCODONE [Concomitant]
     Indication: PAIN
     Dosage: UNK, UNK
     Route: 048
     Dates: start: 201211
  9. VITAMIN D [Concomitant]
     Indication: SUPPLEMENTATION THERAPY
     Dosage: 4000 UNITS, DAILY
     Route: 048

REACTIONS (3)
  - Dyspnoea [Recovered/Resolved]
  - Hyperhidrosis [Recovered/Resolved]
  - Underdose [Recovered/Resolved]
